FAERS Safety Report 8506335 (Version 2)
Quarter: 2012Q4

REPORT INFORMATION
  Report Type: Report from Study
  Country: JP (occurrence: JP)
  Receive Date: 20120412
  Receipt Date: 20121109
  Transmission Date: 20130627
  Serious: Yes (Death, Life-Threatening, Other)
  Sender: FDA-Public Use
  Company Number: PHHY2012JP030435

PATIENT
  Age: 87 Year
  Sex: Male

DRUGS (27)
  1. VANCOMYCIN HYDROCHLORIDE [Suspect]
     Indication: PNEUMONIA STAPHYLOCOCCAL
     Dosage: 0.5 g, BID
     Route: 042
     Dates: start: 20110926, end: 20110930
  2. VANCOMYCIN HYDROCHLORIDE [Suspect]
     Dosage: 0.5 g, QD
     Route: 042
     Dates: start: 20111010, end: 20111016
  3. VANCOMYCIN HYDROCHLORIDE [Suspect]
     Dosage: 0.5 g, BID
     Route: 042
     Dates: start: 20111017, end: 20111017
  4. VANCOMYCIN HYDROCHLORIDE [Suspect]
     Dosage: 0.5 g/day
     Route: 042
     Dates: start: 20111018, end: 20111018
  5. NEOPHAGEN [Concomitant]
     Indication: ANAEMIA
     Dosage: 40 ml, UNK
     Route: 042
     Dates: start: 20110927, end: 20110927
  6. HUMAN RED BLOOD CELLS [Concomitant]
     Indication: ANAEMIA
     Dosage: 4 IU, UNK
     Dates: start: 20110927, end: 20110927
  7. FUROSEMIDE [Concomitant]
     Indication: POLYURIA
     Dosage: 40 mg, UNK
     Route: 042
     Dates: start: 20110914, end: 20111005
  8. FUROSEMIDE [Concomitant]
     Indication: PULMONARY HYPERTENSION
     Dosage: 60 mg, UNK
     Route: 048
     Dates: start: 20111001, end: 20111018
  9. DOPAMINE HYDROCHLORIDE [Concomitant]
     Indication: LIFE SUPPORT
     Dosage: 600 mg, UNK
     Dates: start: 20110925, end: 20111023
  10. ALDACTONE [Concomitant]
     Indication: PULMONARY HYPERTENSION
     Dosage: 25 mg, UNK
     Route: 048
     Dates: start: 20111001, end: 20111018
  11. KALGUT [Concomitant]
     Dosage: 15 mg, UNK
     Route: 048
     Dates: start: 20111001, end: 20111018
  12. DIGOSIN [Concomitant]
     Indication: CARDIAC FAILURE CONGESTIVE
     Dosage: 0.125 mg, UNK
     Route: 048
     Dates: start: 20111001, end: 20111018
  13. PROCYLIN [Concomitant]
     Indication: PULMONARY HYPERTENSION
     Dosage: 60 ug, UNK
     Route: 048
     Dates: start: 20111001, end: 20111018
  14. WARFARIN [Concomitant]
     Indication: CARDIAC FAILURE CONGESTIVE
     Dosage: 1.5 mg, UNK
     Route: 048
     Dates: start: 20111001, end: 20111018
  15. BFLUID [Concomitant]
     Route: 042
     Dates: start: 20110927, end: 20110928
  16. GLUCOSE [Concomitant]
     Dates: end: 20110928
  17. PANTETHINE [Concomitant]
     Dates: end: 20110928
  18. VITAMIN C [Concomitant]
     Dates: end: 20110928
  19. ZANTAC [Concomitant]
     Dates: end: 20110928
  20. SOLDEM [Concomitant]
     Route: 042
     Dates: start: 20110928, end: 20111001
  21. FULCALIQ [Concomitant]
     Indication: PARENTERAL NUTRITION
     Route: 042
     Dates: start: 20110926
  22. PIPERACILLIN SODIUM [Concomitant]
     Dosage: 4 g, UNK
     Route: 042
     Dates: start: 20111010, end: 20111016
  23. CONBELBE [Concomitant]
  24. SOLMALT [Concomitant]
     Route: 042
     Dates: start: 20110928, end: 20111001
  25. ELEMENMIC [Concomitant]
     Route: 042
  26. TWINPAL [Concomitant]
  27. MULTAMIN [Concomitant]
     Dates: start: 20111006, end: 20111016

REACTIONS (12)
  - Circulatory collapse [Fatal]
  - Blood pressure decreased [Fatal]
  - Renal impairment [Unknown]
  - Urine output decreased [Unknown]
  - Anuria [Unknown]
  - Blood urea increased [Unknown]
  - Blood creatinine increased [Unknown]
  - Cardiac failure [Unknown]
  - Inflammation [Unknown]
  - Hyperthermia [Unknown]
  - Drug level increased [Unknown]
  - Pyrexia [Recovered/Resolved]
